FAERS Safety Report 14188787 (Version 3)
Quarter: 2018Q4

REPORT INFORMATION
  Report Type: Spontaneous
  Country: IT (occurrence: IT)
  Receive Date: 20171114
  Receipt Date: 20181221
  Transmission Date: 20190204
  Serious: Yes (Hospitalization, Other)
  Sender: FDA-Public Use
  Company Number: IT-KADMON PHARMACEUTICALS, LLC-KAD201711-001217

PATIENT
  Age: 45 Year
  Sex: Male

DRUGS (34)
  1. RIBAVIRIN. [Suspect]
     Active Substance: RIBAVIRIN
     Dosage: UNKNOWN
  2. SOVALDI [Suspect]
     Active Substance: SOFOSBUVIR
     Indication: HIV INFECTION
     Dosage: 60 MG
  3. DAKLINZA [Suspect]
     Active Substance: DACLATASVIR
     Indication: CHRONIC HEPATITIS C
     Dosage: 30 MG
     Dates: start: 20150603, end: 20150722
  4. KIVEXA [Suspect]
     Active Substance: ABACAVIR SULFATE\LAMIVUDINE
     Indication: HIV INFECTION
     Dosage: 1 DOSAGE FORM
     Route: 048
  5. NORVIR [Concomitant]
     Active Substance: RITONAVIR
     Dates: start: 20090707, end: 20150722
  6. ABACAVIR. [Suspect]
     Active Substance: ABACAVIR
     Indication: CHRONIC HEPATITIS C
  7. RIBAVIRIN. [Suspect]
     Active Substance: RIBAVIRIN
     Indication: HIV INFECTION
     Dosage: 600 MG
  8. DAKLINZA [Suspect]
     Active Substance: DACLATASVIR
     Indication: HEPATITIS C
     Dosage: BLISTER PACK (PVC/PCTFE/AL) - 28 TABLETS
  9. REYATAZ [Suspect]
     Active Substance: ATAZANAVIR SULFATE
     Indication: HIV INFECTION
     Dosage: 300 MG
     Route: 048
     Dates: start: 20091007, end: 20150722
  10. REYATAZ [Suspect]
     Active Substance: ATAZANAVIR SULFATE
     Indication: CHRONIC HEPATITIS C
     Dosage: MG BOTTLE (HIGH DENSITY POLYETHYLENE) 30 CAPSULES
  11. LAEVOLAC EPS [Concomitant]
  12. ABACAVIR/LAMIVUDIN [Concomitant]
     Active Substance: ABACAVIR\LAMIVUDINE
  13. RIBAVIRIN. [Suspect]
     Active Substance: RIBAVIRIN
     Dosage: 200 MG
     Route: 048
     Dates: start: 20150603, end: 20150827
  14. KIVEXA [Suspect]
     Active Substance: ABACAVIR SULFATE\LAMIVUDINE
     Indication: CHRONIC HEPATITIS C
     Dosage: 30X300+600 MG TABLETS IN PVC/PVDC/AL BLISTER PACK
  15. TRUVADA [Suspect]
     Active Substance: EMTRICITABINE\TENOFOVIR DISOPROXIL FUMARATE
     Dosage: UNKNOWN
  16. GAVISCON ADVANCE [Concomitant]
     Active Substance: POTASSIUM BICARBONATE\SODIUM ALGINATE
  17. RIBAVIRIN. [Suspect]
     Active Substance: RIBAVIRIN
     Indication: HEPATITIS C
     Dosage: 1200 MG
     Dates: start: 20150603, end: 20150827
  18. SOVALDI [Suspect]
     Active Substance: SOFOSBUVIR
     Indication: CHRONIC HEPATITIS C
     Dosage: 400 MG
     Route: 048
  19. REYATAZ [Suspect]
     Active Substance: ATAZANAVIR SULFATE
     Indication: ACQUIRED IMMUNODEFICIENCY SYNDROME
  20. RITONAVIR. [Suspect]
     Active Substance: RITONAVIR
     Indication: HIV INFECTION
  21. ABACAVIR. [Suspect]
     Active Substance: ABACAVIR
     Indication: HIV INFECTION
     Dosage: 1 DOSAGE FORM
     Route: 048
  22. RALTEGRAVIR. [Concomitant]
     Active Substance: RALTEGRAVIR
  23. SOVALDI [Suspect]
     Active Substance: SOFOSBUVIR
     Indication: HEPATITIS C
     Dosage: 400 MG BOTTLE, (HDPE), 28 TABLETS
  24. DAKLINZA [Suspect]
     Active Substance: DACLATASVIR
     Indication: HIV INFECTION
     Dosage: 60 MG
  25. TRUVADA [Suspect]
     Active Substance: EMTRICITABINE\TENOFOVIR DISOPROXIL FUMARATE
     Indication: HIV INFECTION
     Route: 048
  26. PERIDON [Concomitant]
     Active Substance: DOMPERIDONE
  27. DIBASE [Concomitant]
     Active Substance: CHOLECALCIFEROL
  28. LAMIVUDINE. [Concomitant]
     Active Substance: LAMIVUDINE
  29. SOFOSBUVIR [Concomitant]
     Active Substance: SOFOSBUVIR
  30. RIBAVIRIN. [Suspect]
     Active Substance: RIBAVIRIN
     Indication: CHRONIC HEPATITIS C
     Dosage: 1000 MG
     Dates: start: 20150603, end: 20150827
  31. KIVEXA [Suspect]
     Active Substance: ABACAVIR SULFATE\LAMIVUDINE
     Dosage: UNKNOWN
  32. TALOFEN [Concomitant]
     Active Substance: PROMAZINE HYDROCHLORIDE
     Route: 048
  33. NEORECORMON [Concomitant]
     Active Substance: ERYTHROPOIETIN
  34. METADONE CLORIDRATO [Concomitant]
     Active Substance: METHADONE HYDROCHLORIDE

REACTIONS (3)
  - Drug interaction [Recovered/Resolved]
  - Anaemia [Recovered/Resolved]
  - Hyperbilirubinaemia [Recovered/Resolved]
